FAERS Safety Report 8202410-3 (Version None)
Quarter: 2012Q1

REPORT INFORMATION
  Report Type: 
  Country: None (occurrence: None)
  Receive Date: 20120312
  Receipt Date: 20110531
  Transmission Date: 20120608
  Serious: Yes (Other)
  Sender: FDA-Public Use
  Company Number: US-ABBOTT-11P-163-0726740-00

PATIENT
  Sex: Female
  Weight: 80.358 kg

DRUGS (4)
  1. EXCEDRIN [Concomitant]
     Indication: PRODUCT USED FOR UNKNOWN INDICATION
     Dates: start: 20091201
  2. DEPAKOTE [Suspect]
     Indication: PRODUCT USED FOR UNKNOWN INDICATION
     Route: 048
     Dates: start: 20100407, end: 20100731
  3. NUVIGIL [Suspect]
     Indication: MAJOR DEPRESSION
     Route: 048
     Dates: start: 20100603, end: 20100731
  4. IBUPROFEN [Concomitant]
     Indication: PRODUCT USED FOR UNKNOWN INDICATION
     Dates: start: 20091201

REACTIONS (1)
  - HEPATITIS ACUTE [None]
